FAERS Safety Report 7771039-3 (Version None)
Quarter: 2011Q3

REPORT INFORMATION
  Report Type: 
  Country: None (occurrence: None)
  Receive Date: 20110922
  Receipt Date: 20110210
  Transmission Date: 20111222
  Serious: No
  Sender: FDA-Public Use
  Company Number: US-ASTRAZENECA-2011SE08216

PATIENT
  Age: 43 Year
  Sex: Female

DRUGS (3)
  1. PRISTIQ [Concomitant]
     Indication: MAJOR DEPRESSION
  2. SEROQUEL XR [Suspect]
     Route: 048
     Dates: start: 20110113
  3. SEROQUEL XR [Suspect]
     Indication: MAJOR DEPRESSION
     Route: 048
     Dates: start: 20101101, end: 20110113

REACTIONS (6)
  - DISTURBANCE IN ATTENTION [None]
  - WRONG TECHNIQUE IN DRUG USAGE PROCESS [None]
  - ACTIVITIES OF DAILY LIVING IMPAIRED [None]
  - HYPERSOMNIA [None]
  - SOMNOLENCE [None]
  - HEADACHE [None]
